FAERS Safety Report 9626786 (Version 1)
Quarter: 2013Q4

REPORT INFORMATION
  Report Type: Spontaneous
  Country: IT (occurrence: IT)
  Receive Date: 20131016
  Receipt Date: 20131016
  Transmission Date: 20140711
  Serious: Yes (Hospitalization)
  Sender: FDA-Public Use
  Company Number: IT-GLAXOSMITHKLINE-B0931100A

PATIENT
  Age: 70 Year
  Sex: Female

DRUGS (8)
  1. ELONTRIL [Suspect]
     Indication: PRODUCT USED FOR UNKNOWN INDICATION
     Dosage: 150MG UNKNOWN
     Dates: start: 20130720
  2. ZOLPIDEM TARTRATE [Concomitant]
  3. LORAZEPAM [Concomitant]
  4. CARDIOASPIRIN [Concomitant]
  5. ZOLOFT [Concomitant]
  6. CARBOLITHIUM [Concomitant]
  7. ONCO-CARBIDE [Concomitant]
  8. ANTIDEPRESSANT [Concomitant]

REACTIONS (3)
  - Somnolence [Recovering/Resolving]
  - Clonus [Unknown]
  - Drug abuse [Unknown]
